FAERS Safety Report 11053013 (Version 1)
Quarter: 2015Q2

REPORT INFORMATION
  Report Type: Spontaneous
  Country: US (occurrence: None)
  Receive Date: 20150420
  Receipt Date: 20150420
  Transmission Date: 20150821
  Serious: Yes (Other)
  Sender: FDA-Public Use
  Company Number: None

PATIENT
  Age: 59 Year
  Sex: Female
  Weight: 68.04 kg

DRUGS (4)
  1. SYNTHROID [Concomitant]
     Active Substance: LEVOTHYROXINE SODIUM
  2. LETROZOLE 2.5MG APOTEX INC [Suspect]
     Active Substance: LETROZOLE
     Indication: ENDOMETRIAL CANCER
     Route: 048
     Dates: start: 20150322, end: 20150327
  3. LEVONORGESTREL. [Concomitant]
     Active Substance: LEVONORGESTREL
  4. LETROZOLE 2.5MG ROXANE LABORATORIES [Suspect]
     Active Substance: LETROZOLE
     Indication: ENDOMETRIAL CANCER
     Route: 048
     Dates: start: 20150301, end: 20150306

REACTIONS (4)
  - Product substitution issue [None]
  - Pain [None]
  - Product quality issue [None]
  - Drug ineffective [None]

NARRATIVE: CASE EVENT DATE: 20150306
